FAERS Safety Report 8733023 (Version 3)
Quarter: 2012Q4

REPORT INFORMATION
  Report Type: Spontaneous
  Country: GB (occurrence: None)
  Receive Date: 20120802
  Receipt Date: 20120829
  Transmission Date: 20130627
  Serious: Yes (Life-Threatening, Other)
  Sender: FDA-Public Use
  Company Number: 2012000190

PATIENT
  Age: 51 Year
  Sex: Female
  Weight: 55 kg

DRUGS (2)
  1. ACEON [Suspect]
     Indication: DRUG USE FOR UNKNOWN INDICATION
     Dosage: ORAL
     Route: 048
     Dates: start: 20050614
  2. AMOXICILLIN [Concomitant]

REACTIONS (4)
  - Abnormal faeces [None]
  - Maternal exposure during pregnancy [None]
  - Pregnancy [None]
  - Faeces discoloured [None]
